FAERS Safety Report 4338742-9 (Version None)
Quarter: 2004Q2

REPORT INFORMATION
  Report Type: 
  Country: None (occurrence: None)
  Receive Date: 20040409
  Receipt Date: 20040329
  Transmission Date: 20050107
  Serious: Yes (Disabling)
  Sender: FDA-Public Use
  Company Number: GB-JNJFOC-20040302112

PATIENT
  Age: 13 Year
  Sex: Male
  Weight: 78.5 kg

DRUGS (2)
  1. RISPERDAL [Suspect]
     Indication: ASPERGER'S DISORDER
     Dosage: IN 1  DAY, ORAL
     Route: 048
     Dates: start: 20040225, end: 20040318
  2. FLUOXETINE [Concomitant]

REACTIONS (2)
  - ENURESIS [None]
  - POLLAKIURIA [None]
